FAERS Safety Report 7434522-6 (Version None)
Quarter: 2011Q2

REPORT INFORMATION
  Report Type: 
  Country: None (occurrence: None)
  Receive Date: 20110414
  Receipt Date: 20110404
  Transmission Date: 20111010
  Serious: Yes (Death)
  Sender: FDA-Public Use
  Company Number: UTC-006094

PATIENT
  Age: 72 Year
  Sex: Female

DRUGS (1)
  1. REMODULIN [Suspect]
     Dates: start: 20080919

REACTIONS (1)
  - DEATH [None]
